FAERS Safety Report 4665480-5 (Version None)
Quarter: 2005Q2

REPORT INFORMATION
  Report Type: 
  Country: None (occurrence: None)
  Receive Date: 20050519
  Receipt Date: 20040806
  Transmission Date: 20051028
  Serious: No
  Sender: FDA-Public Use
  Company Number: US-BRISTOL-MYERS SQUIBB COMPANY-12663779

PATIENT
  Age: 51 Year
  Sex: Female
  Weight: 59 kg

DRUGS (7)
  1. CYTOXAN [Suspect]
     Indication: SYSTEMIC LUPUS ERYTHEMATOSUS
     Route: 048
     Dates: start: 20040101, end: 20040329
  2. CYTOXAN [Suspect]
     Route: 048
     Dates: start: 20040329
  3. SYNTHROID [Concomitant]
  4. CALCIUM GLUCONATE [Concomitant]
  5. VITAMINS [Concomitant]
  6. EPOGEN [Concomitant]
  7. BENECOL [Concomitant]

REACTIONS (4)
  - ALOPECIA [None]
  - DRY SKIN [None]
  - HEADACHE [None]
  - RASH [None]
